FAERS Safety Report 7370142-X (Version None)
Quarter: 2011Q1

REPORT INFORMATION
  Report Type: 
  Country: None (occurrence: None)
  Receive Date: 20110323
  Receipt Date: 20110314
  Transmission Date: 20110831
  Serious: Yes (Hospitalization)
  Sender: FDA-Public Use
  Company Number: JP-ASTRAZENECA-2011SE15609

PATIENT
  Sex: Female
  Weight: 72 kg

DRUGS (7)
  1. PANTOZOL [Concomitant]
     Indication: GASTRITIS
     Route: 048
     Dates: start: 20070220
  2. PLAVIX [Concomitant]
     Indication: CAROTID ARTERY STENOSIS
     Route: 048
     Dates: start: 20040616
  3. CARDULAR [Concomitant]
     Indication: HYPERTENSION
     Route: 048
     Dates: start: 20091128
  4. HYDROCHLOROTHIAZIDE [Concomitant]
     Indication: HYPERTENSION
     Route: 048
     Dates: start: 20091128
  5. BLOPRESS [Suspect]
     Indication: HYPERTENSION
     Route: 048
     Dates: start: 20090420, end: 20091129
  6. METOPROLOL SUCCINAT [Concomitant]
     Indication: HYPERTENSION
     Route: 048
     Dates: start: 20091128
  7. NITRENDIPINE [Suspect]
     Indication: HYPERTENSION
     Route: 048
     Dates: start: 20090520, end: 20091127

REACTIONS (1)
  - HYPERTENSIVE CRISIS [None]
